FAERS Safety Report 23385466 (Version 1)
Quarter: 2024Q1

REPORT INFORMATION
  Report Type: Spontaneous
  Country: JP (occurrence: JP)
  Receive Date: 20240110
  Receipt Date: 20240110
  Transmission Date: 20240409
  Serious: Yes (Hospitalization)
  Sender: FDA-Public Use
  Company Number: JP-SUN PHARMACEUTICAL INDUSTRIES LTD-2023R1-426415

PATIENT
  Age: 75 Year
  Sex: Female

DRUGS (1)
  1. MINOCYCLINE [Suspect]
     Active Substance: MINOCYCLINE HYDROCHLORIDE
     Indication: Lupus miliaris disseminatus faciei
     Dosage: 100 MILLIGRAM, QD
     Route: 048

REACTIONS (1)
  - Skin hyperpigmentation [Recovering/Resolving]
